FAERS Safety Report 9055300 (Version 1)
Quarter: 2013Q1

REPORT INFORMATION
  Report Type: Report from Study
  Country: US (occurrence: US)
  Receive Date: 20130209
  Receipt Date: 20130209
  Transmission Date: 20140127
  Serious: Yes (Hospitalization)
  Sender: FDA-Public Use
  Company Number: US-US-EMD SERONO, INC.-7192020

PATIENT
  Sex: Male

DRUGS (1)
  1. REBIF [Suspect]
     Indication: MULTIPLE SCLEROSIS
     Route: 058
     Dates: start: 20120808

REACTIONS (3)
  - Influenza [Recovered/Resolved]
  - Vision blurred [Recovered/Resolved]
  - Multiple sclerosis [Unknown]
